FAERS Safety Report 8035670-2 (Version None)
Quarter: 2011Q4

REPORT INFORMATION
  Report Type: 
  Country: None (occurrence: None)
  Receive Date: 20111222
  Receipt Date: 20111208
  Transmission Date: 20120403
  Serious: Yes (Other)
  Sender: FDA-Public Use
  Company Number: DE-1189174

PATIENT
  Age: 58 Year
  Sex: Male

DRUGS (2)
  1. TRAVATAN [Suspect]
     Indication: GLAUCOMA
     Dosage: ONCE DAILY IN THE NIGHT, OPHTHALMIC
     Route: 047
     Dates: start: 20070101
  2. TRAVATAN [Suspect]
     Indication: GLAUCOMA
     Dosage: ONCE DAILY IN THE NIGHT, OPHTHALMIC
     Route: 047
     Dates: end: 20111124

REACTIONS (1)
  - HYPOSMIA [None]
